FAERS Safety Report 10345089 (Version 2)
Quarter: 2014Q3

REPORT INFORMATION
  Report Type: Spontaneous
  Country: US (occurrence: US)
  Receive Date: 20140728
  Receipt Date: 20140915
  Transmission Date: 20150326
  Serious: Yes (Hospitalization)
  Sender: FDA-Public Use
  Company Number: US-SA-2014SA099030

PATIENT
  Age: 70 Year
  Sex: Male
  Weight: 49.6 kg

DRUGS (19)
  1. LUMIGAN [Concomitant]
     Active Substance: BIMATOPROST
  2. OXALIPLATIN. [Concomitant]
     Active Substance: OXALIPLATIN
     Dates: start: 20140627, end: 20140627
  3. FOLINIC ACID [Concomitant]
     Active Substance: LEUCOVORIN
     Dates: start: 20140627, end: 20140627
  4. ALPRAZOLAM. [Concomitant]
     Active Substance: ALPRAZOLAM
  5. COMPAZINE [Concomitant]
     Active Substance: PROCHLORPERAZINE MALEATE
  6. TRAZODONE [Concomitant]
     Active Substance: TRAZODONE HYDROCHLORIDE
  7. OXALIPLATIN. [Concomitant]
     Active Substance: OXALIPLATIN
     Dates: start: 20140124, end: 20140124
  8. ZALTRAP [Suspect]
     Active Substance: ZIV-AFLIBERCEPT
     Indication: OESOPHAGEAL CANCER METASTATIC
     Route: 042
     Dates: start: 20140124, end: 20140124
  9. BRINZOLAMIDE [Concomitant]
     Active Substance: BRINZOLAMIDE
  10. PENICILLIN V POTASSIUM. [Concomitant]
     Active Substance: PENICILLIN V POTASSIUM
  11. TAMSULOSIN [Concomitant]
     Active Substance: TAMSULOSIN
  12. FOLINIC ACID [Concomitant]
     Active Substance: LEUCOVORIN
     Dates: start: 20140124, end: 20140124
  13. ZALTRAP [Suspect]
     Active Substance: ZIV-AFLIBERCEPT
     Indication: OESOPHAGEAL CANCER METASTATIC
     Route: 042
     Dates: start: 20140627, end: 20140627
  14. ACETAMINOPHEN. [Concomitant]
     Active Substance: ACETAMINOPHEN
  15. ASPIRIN. [Concomitant]
     Active Substance: ASPIRIN
  16. SIMVASTATIN. [Concomitant]
     Active Substance: SIMVASTATIN
  17. ZOLOFT [Concomitant]
     Active Substance: SERTRALINE HYDROCHLORIDE
  18. FLUOROURACIL. [Concomitant]
     Active Substance: FLUOROURACIL
     Dates: start: 20140124, end: 20140124
  19. FLUOROURACIL. [Concomitant]
     Active Substance: FLUOROURACIL
     Dates: start: 20140627, end: 20140627

REACTIONS (3)
  - Renal failure acute [Unknown]
  - Pneumonia [Unknown]
  - Blood creatinine increased [Unknown]

NARRATIVE: CASE EVENT DATE: 20140708
